FAERS Safety Report 5245180-3 (Version None)
Quarter: 2007Q1

REPORT INFORMATION
  Report Type: 
  Country: None (occurrence: None)
  Receive Date: 20070223
  Receipt Date: 20070214
  Transmission Date: 20070707
  Serious: Yes (Hospitalization)
  Sender: FDA-Public Use
  Company Number: BR-JNJFOC-20070204163

PATIENT
  Age: 51 Year
  Sex: Female
  Weight: 66 kg

DRUGS (4)
  1. ACETAMINOPHEN W/ CODEINE [Suspect]
     Route: 048
  2. ACETAMINOPHEN W/ CODEINE [Suspect]
     Indication: PAIN IN EXTREMITY
     Route: 048
  3. DIPYRON [Concomitant]
     Indication: PAIN
  4. KETOPROFEN [Concomitant]
     Indication: PAIN IN EXTREMITY

REACTIONS (7)
  - DEEP VEIN THROMBOSIS [None]
  - DIZZINESS [None]
  - GANGRENE [None]
  - LYMPHATIC DISORDER [None]
  - NAUSEA [None]
  - SOMNOLENCE [None]
  - VOMITING [None]
